FAERS Safety Report 6492850-5 (Version None)
Quarter: 2009Q4

REPORT INFORMATION
  Report Type: 
  Country: None (occurrence: None)
  Receive Date: 20091211
  Receipt Date: 20091211
  Transmission Date: 20100525
  Serious: Yes (Other)
  Sender: FDA-Public Use
  Company Number: None

PATIENT
  Sex: Female
  Weight: 93.5771 kg

DRUGS (1)
  1. OXALIPLATIN [Suspect]
     Indication: CHEMOTHERAPY
     Dosage: 130 MG/M2 IV
     Route: 042
     Dates: start: 20091209, end: 20091209

REACTIONS (3)
  - DRUG HYPERSENSITIVITY [None]
  - DYSAESTHESIA PHARYNX [None]
  - INFUSION RELATED REACTION [None]
